FAERS Safety Report 20605014 (Version 4)
Quarter: 2022Q3

REPORT INFORMATION
  Report Type: Report from Study
  Country: BE (occurrence: BE)
  Receive Date: 20220317
  Receipt Date: 20220714
  Transmission Date: 20221026
  Serious: Yes (Other)
  Sender: FDA-Public Use
  Company Number: BE-ABBVIE-22K-013-4318076-00

PATIENT
  Age: 65 Year
  Sex: Female
  Weight: 65 kg

DRUGS (17)
  1. UPADACITINIB [Suspect]
     Active Substance: UPADACITINIB
     Indication: Rheumatoid arthritis
     Route: 048
     Dates: start: 20210106
  2. METHOTREXATE [Concomitant]
     Active Substance: METHOTREXATE
     Indication: Rheumatoid arthritis
     Route: 048
     Dates: start: 20200825, end: 20211109
  3. METHOTREXATE [Concomitant]
     Active Substance: METHOTREXATE
     Route: 048
     Dates: start: 20211110, end: 20220103
  4. METHOTREXATE [Concomitant]
     Active Substance: METHOTREXATE
     Route: 048
     Dates: start: 20220104
  5. FOLIC ACID [Concomitant]
     Active Substance: FOLIC ACID
     Indication: Rheumatoid arthritis
     Route: 048
     Dates: start: 20200319
  6. METHYLPREDNISOLONE [Concomitant]
     Active Substance: METHYLPREDNISOLONE
     Indication: Rheumatoid arthritis
     Route: 048
     Dates: start: 20021203, end: 20210112
  7. LEFLUNOMIDE [Concomitant]
     Active Substance: LEFLUNOMIDE
     Indication: Rheumatoid arthritis
     Route: 048
     Dates: start: 20200915, end: 20210106
  8. ATORVASTATIN [Concomitant]
     Active Substance: ATORVASTATIN
     Indication: Hyperlipidaemia
     Route: 048
     Dates: start: 2017
  9. PROLIA [Concomitant]
     Active Substance: DENOSUMAB
     Indication: Osteoporosis
     Route: 058
     Dates: start: 20200424
  10. CALCIUM CARBONATE [Concomitant]
     Active Substance: CALCIUM CARBONATE
     Indication: Osteoporosis
     Dosage: CALCIUM CARBONATE 1 000 MG COLECALIFEROL 800 IE
     Route: 048
     Dates: start: 20200424
  11. DEPO-MEDROL [Concomitant]
     Active Substance: METHYLPREDNISOLONE ACETATE
     Indication: Carpal tunnel syndrome
     Dosage: ONCE
     Route: 058
     Dates: start: 20210223, end: 20210223
  12. DEPO-MEDROL [Concomitant]
     Active Substance: METHYLPREDNISOLONE ACETATE
     Dates: start: 20220111, end: 20220111
  13. PANTOMED [Concomitant]
     Indication: Prophylaxis
     Route: 048
     Dates: start: 20210223
  14. DEPO-MEDROL [Concomitant]
     Active Substance: METHYLPREDNISOLONE ACETATE
     Indication: Trigger finger
     Dosage: ONCE
     Route: 058
     Dates: start: 20220111, end: 20220111
  15. SARS-COV-2 VACCINE [Concomitant]
     Indication: COVID-19 immunisation
     Dosage: SEVERE ACUTE RESPIRATORY SYNDROME CORONAVIRUS 2
     Route: 030
     Dates: start: 20210427, end: 20210427
  16. SARS-COV-2 VACCINE [Concomitant]
     Route: 030
     Dates: start: 20210716, end: 20210716
  17. SARS-COV-2 VACCINE [Concomitant]
     Route: 030
     Dates: start: 20210930, end: 20210930

REACTIONS (2)
  - Cataract [Recovered/Resolved]
  - Cataract [Recovered/Resolved]

NARRATIVE: CASE EVENT DATE: 20220101
